FAERS Safety Report 19154976 (Version 2)
Quarter: 2021Q2

REPORT INFORMATION
  Report Type: Spontaneous
  Country: CA (occurrence: CA)
  Receive Date: 20210419
  Receipt Date: 20210420
  Transmission Date: 20210717
  Serious: Yes (Death)
  Sender: FDA-Public Use
  Company Number: CA-JNJFOC-20210436592

PATIENT

DRUGS (8)
  1. VANCOMYCIN [Concomitant]
     Active Substance: VANCOMYCIN
     Indication: PRODUCT USED FOR UNKNOWN INDICATION
     Route: 065
  2. FUROSEMIDE. [Concomitant]
     Active Substance: FUROSEMIDE
     Indication: PRODUCT USED FOR UNKNOWN INDICATION
     Route: 065
  3. IBUPROFEN. [Suspect]
     Active Substance: IBUPROFEN
     Indication: PATENT DUCTUS ARTERIOSUS
     Dosage: POSTNATAL AGE OF 13 DAYS: 1055MG/KG/DAY; POSTNATAL AGE OF 35 DAYS: 157.57.5MG/KG/DAY; POSTNATA
     Route: 042
  4. CAFFEINE. [Concomitant]
     Active Substance: CAFFEINE
     Indication: PRODUCT USED FOR UNKNOWN INDICATION
     Route: 065
  5. IBUPROFEN. [Suspect]
     Active Substance: IBUPROFEN
     Indication: PATENT DUCTUS ARTERIOSUS
     Dosage: POSTNATAL AGE OF 13 DAYS: 1055MG/KG/DAY; POSTNATAL AGE OF 35 DAYS: 157.57.5MG/KG/DAY; POSTNATA
     Route: 048
  6. PARACETAMOL [Suspect]
     Active Substance: ACETAMINOPHEN
     Indication: PATENT DUCTUS ARTERIOSUS
     Route: 065
  7. INDOMETHACIN [INDOMETACIN] [Concomitant]
     Active Substance: INDOMETHACIN
     Indication: PROPHYLAXIS
     Route: 065
  8. INDOMETHACIN [INDOMETACIN] [Suspect]
     Active Substance: INDOMETHACIN
     Indication: PATENT DUCTUS ARTERIOSUS
     Route: 065

REACTIONS (9)
  - Gastrointestinal haemorrhage [Fatal]
  - Necrotising colitis [Fatal]
  - Oliguria [Fatal]
  - Bronchopulmonary dysplasia [Fatal]
  - Prescribed overdose [Fatal]
  - Retinopathy of prematurity [Fatal]
  - Intraventricular haemorrhage [Fatal]
  - Product use in unapproved indication [Fatal]
  - Off label use [Fatal]
